FAERS Safety Report 4421587-9 (Version None)
Quarter: 2004Q3

REPORT INFORMATION
  Report Type: 
  Country: None (occurrence: None)
  Receive Date: 20040804
  Receipt Date: 20040726
  Transmission Date: 20050211
  Serious: Yes (Hospitalization)
  Sender: FDA-Public Use
  Company Number: 2004CG00996

PATIENT
  Age: 70 Year
  Sex: Male

DRUGS (12)
  1. OMEPRAZOLE [Suspect]
     Dosage: 1 DF DAILY PO
     Route: 048
     Dates: end: 20031224
  2. APEGMONE [Suspect]
  3. LESCOL [Suspect]
  4. UNICORDIUM [Suspect]
  5. DIGITALINE NATIVELLE [Suspect]
  6. ZYLORIC ^GLAXO WELLCOME^ [Suspect]
  7. NOCTRAN 10 [Suspect]
  8. ROCEPHIN [Suspect]
     Dates: start: 20031201, end: 20031201
  9. TAVANIC [Suspect]
     Dates: start: 20031201, end: 20031201
  10. PNEUMOREL [Suspect]
     Dates: start: 20031201, end: 20031201
  11. DIAMICRON [Concomitant]
  12. METFORMIN HCL [Concomitant]

REACTIONS (1)
  - CONFUSIONAL STATE [None]
